FAERS Safety Report 7776123-6 (Version None)
Quarter: 2011Q3

REPORT INFORMATION
  Report Type: 
  Country: None (occurrence: None)
  Receive Date: 20110925
  Receipt Date: 20110316
  Transmission Date: 20111222
  Serious: Yes (Other)
  Sender: FDA-Public Use
  Company Number: PHHY2011TW21323

PATIENT
  Sex: Male

DRUGS (2)
  1. GLEEVEC [Suspect]
     Dosage: 600 MG, DAILY
     Route: 048
  2. GLEEVEC [Suspect]
     Indication: CHRONIC MYELOID LEUKAEMIA
     Dosage: 400 MG, DAILY
     Route: 048

REACTIONS (8)
  - DRUG LEVEL BELOW THERAPEUTIC [None]
  - RHINITIS ALLERGIC [None]
  - DIARRHOEA [None]
  - NASOPHARYNGITIS [None]
  - TUMOUR MARKER INCREASED [None]
  - TOOTHACHE [None]
  - GASTROOESOPHAGEAL REFLUX DISEASE [None]
  - PROCTALGIA [None]
